FAERS Safety Report 7237273-6 (Version None)
Quarter: 2011Q1

REPORT INFORMATION
  Report Type: 
  Country: None (occurrence: None)
  Receive Date: 20110112
  Receipt Date: 20110103
  Transmission Date: 20110831
  Serious: Yes (Hospitalization)
  Sender: FDA-Public Use
  Company Number: 1000018071

PATIENT
  Age: 73 Year
  Sex: Female

DRUGS (6)
  1. MEMANTINE [Suspect]
     Dosage: ORAL
     Route: 048
     Dates: start: 20101007
  2. LEPTICUR (TROPATEPINE HYDROCHLORIDE) (TABLETS) [Suspect]
     Dosage: 20 MILLIGRAM (10 MG,2 IN 1 D),ORAL
     Route: 048
     Dates: start: 20100929, end: 20101006
  3. REIMINYL (GALANTAMINE HYDROCHLORIDE) [Suspect]
     Dosage: ORAL
     Route: 048
     Dates: start: 20101007
  4. REMINYL (GALANTAMINE HYDROBROMIDE) (CAPSULES) [Suspect]
     Dosage: 32 MILLIGRAM (16 MG,2 IN 1 D),ORAL
     Route: 048
     Dates: end: 20101006
  5. ZYPREXA [Suspect]
     Dosage: (OCCASIONALLY)
  6. MEMANTINE [Suspect]
     Dosage: 40 MG (20 MG,2 IN 1 D),ORAL
     Route: 048
     Dates: end: 20101006

REACTIONS (6)
  - DISTURBANCE IN ATTENTION [None]
  - GENERAL PHYSICAL HEALTH DETERIORATION [None]
  - FALL [None]
  - OVERDOSE [None]
  - RHABDOMYOLYSIS [None]
  - CONFUSIONAL STATE [None]
